FAERS Safety Report 9403626 (Version 1)
Quarter: 2013Q3

REPORT INFORMATION
  Report Type: Spontaneous
  Country: DE (occurrence: DE)
  Receive Date: 20130717
  Receipt Date: 20130717
  Transmission Date: 20140515
  Serious: Yes (Other)
  Sender: FDA-Public Use
  Company Number: DE-RANBAXY-2013RR-71018

PATIENT
  Sex: Male
  Weight: 66 kg

DRUGS (1)
  1. RISPERIDONE [Suspect]
     Indication: AUTISM
     Dosage: 1X1, QD
     Route: 065
     Dates: start: 2010

REACTIONS (1)
  - Growth retardation [Unknown]
